FAERS Safety Report 5042671-5 (Version None)
Quarter: 2006Q3

REPORT INFORMATION
  Report Type: 
  Country: None (occurrence: None)
  Receive Date: 20060705
  Receipt Date: 20060508
  Transmission Date: 20061208
  Serious: Yes (Hospitalization)
  Sender: FDA-Public Use
  Company Number: 2006AC00877

PATIENT
  Age: 23550 Day
  Sex: Female

DRUGS (20)
  1. IRESSA [Suspect]
     Indication: OROPHARYNGEAL CANCER STAGE UNSPECIFIED
     Dosage: CONCOMITANT PHASE
     Route: 048
     Dates: start: 20060404, end: 20060504
  2. CISPLATIN [Suspect]
     Indication: OROPHARYNGEAL CANCER STAGE UNSPECIFIED
     Route: 042
     Dates: start: 20060418, end: 20060418
  3. CISPLATIN [Suspect]
     Route: 042
     Dates: start: 20060510, end: 20060510
  4. RADIOTHERAPY [Suspect]
     Indication: OROPHARYNGEAL CANCER STAGE UNSPECIFIED
     Dosage: 2 GRAYS PER DAY
     Dates: start: 20060418, end: 20060420
  5. RADIOTHERAPY [Suspect]
     Dosage: 4 GRAYS PER DAY TO CATCH UP ON MISSED DOSE
     Dates: start: 20060421, end: 20060421
  6. RADIOTHERAPY [Suspect]
     Dosage: 2 GRAYS PER DAY
     Dates: start: 20060424, end: 20060428
  7. RADIOTHERAPY [Suspect]
     Dosage: 4 GRAYS PER DAY TO CATCH UP ON MISSED DOSE
     Dates: start: 20060502, end: 20060502
  8. RADIOTHERAPY [Suspect]
     Dosage: 2 GRAYS PER DAY
     Dates: start: 20060503, end: 20060505
  9. RADIOTHERAPY [Suspect]
     Dosage: 2 GRAYS PER DAY
     Dates: start: 20060508, end: 20060512
  10. RADIOTHERAPY [Suspect]
     Dosage: 2 GRAYS PER DAY
     Dates: start: 20060515, end: 20060519
  11. RADIOTHERAPY [Suspect]
     Dosage: 2 GRAYS PER DAY
     Dates: start: 20060522, end: 20060526
  12. CONTRAMAL [Concomitant]
     Indication: PAIN
     Route: 048
     Dates: start: 20050301
  13. MS CONTIN [Concomitant]
     Route: 048
     Dates: start: 20050301, end: 20060418
  14. DAFALGAN [Concomitant]
     Indication: PAIN
     Route: 048
     Dates: start: 20060418
  15. KONAKION [Concomitant]
     Indication: MINERAL SUPPLEMENTATION
  16. DURAGESIC-100 [Concomitant]
     Indication: ODYNOPHAGIA
     Route: 003
  17. WASHMOUTH [Concomitant]
     Indication: PROPHYLAXIS
     Route: 048
  18. MOTILIUM INSTANT [Concomitant]
     Indication: DIARRHOEA
  19. MS CONTIN [Concomitant]
     Route: 048
     Dates: start: 20060418
  20. XANAX [Concomitant]
     Indication: ANXIETY
     Route: 048
     Dates: start: 20060418

REACTIONS (5)
  - BLOOD POTASSIUM DECREASED [None]
  - GLUCOSE TOLERANCE IMPAIRED [None]
  - LIVEDO RETICULARIS [None]
  - OEDEMA PERIPHERAL [None]
  - PROTEIN TOTAL DECREASED [None]
